FAERS Safety Report 10170329 (Version 1)
Quarter: 2014Q2

REPORT INFORMATION
  Report Type: Report from Study
  Country: US (occurrence: US)
  Receive Date: 20140513
  Receipt Date: 20140513
  Transmission Date: 20141212
  Serious: Yes (Hospitalization)
  Sender: FDA-Public Use
  Company Number: US-MPIJNJ-2014MPI001359

PATIENT
  Age: 47 Year
  Sex: Female
  Weight: 85.4 kg

DRUGS (3)
  1. VELCADE [Suspect]
     Indication: PLASMA CELL MYELOMA
     Dosage: UNK
  2. DEXAMETHASONE [Suspect]
     Indication: PLASMA CELL MYELOMA
  3. LENALIDOMIDE [Suspect]
     Indication: PLASMA CELL MYELOMA
     Dosage: 25 MG, CYCLIC (FOR 14 DAYS OF EACH CYCLE)
     Route: 048
     Dates: start: 20140425, end: 20140427

REACTIONS (2)
  - Chest pain [Unknown]
  - Anaemia [Unknown]
